FAERS Safety Report 17649388 (Version 8)
Quarter: 2021Q1

REPORT INFORMATION
  Report Type: Other
  Country: BR (occurrence: BR)
  Receive Date: 20200409
  Receipt Date: 20210128
  Transmission Date: 20210419
  Serious: Yes (Other)
  Sender: FDA-Public Use
  Company Number: BR-ROCHE-2581376

PATIENT
  Age: 43 Year
  Sex: Female

DRUGS (7)
  1. XOLAIR [Suspect]
     Active Substance: OMALIZUMAB
     Indication: CHRONIC SPONTANEOUS URTICARIA
     Dosage: 2 DF (2 VIALS)
     Route: 065
     Dates: start: 20200128, end: 20200128
  2. ATACAND [Concomitant]
     Active Substance: CANDESARTAN CILEXETIL
     Indication: HYPERTENSION
     Dosage: 1 DF, QD, COMB 15X5
     Route: 048
     Dates: start: 2015
  3. XOLAIR [Suspect]
     Active Substance: OMALIZUMAB
     Indication: URTICARIA
     Dosage: 1 DF
     Route: 058
     Dates: start: 20200128, end: 20200128
  4. XOLAIR [Suspect]
     Active Substance: OMALIZUMAB
     Route: 058
     Dates: start: 202002
  5. XOLAIR [Suspect]
     Active Substance: OMALIZUMAB
     Dosage: 1 DF, AMPOULE, THE PACKAGE WAS DISCARDED
     Route: 058
     Dates: start: 20200128, end: 20200128
  6. EUTHYROX [Concomitant]
     Active Substance: LEVOTHYROXINE SODIUM
     Indication: HYPOTHYROIDISM
     Dosage: 1 DF, QD, EUTHYROX 125
     Route: 048
     Dates: start: 2002
  7. VANNAIR [Concomitant]
     Active Substance: BUDESONIDE\FORMOTEROL FUMARATE DIHYDRATE
     Indication: ASTHMATIC CRISIS
     Dosage: UNK, ONE TO TWO SPRAYS, WHEN SHE WAS IN CRISIS
     Route: 048
     Dates: start: 2015

REACTIONS (34)
  - Pain [Recovered/Resolved]
  - Hypersensitivity [Recovered/Resolved]
  - Erythema [Recovered/Resolved]
  - Skin plaque [Not Recovered/Not Resolved]
  - Loss of consciousness [Recovered/Resolved]
  - Balance disorder [Recovered/Resolved]
  - Face oedema [Recovering/Resolving]
  - Throat irritation [Recovered/Resolved]
  - Diarrhoea [Recovered/Resolved]
  - Asthenia [Recovered/Resolved]
  - Rash [Recovered/Resolved]
  - Application site mass [Recovered/Resolved]
  - Abdominal discomfort [Recovered/Resolved]
  - Renal colic [Recovering/Resolving]
  - Headache [Recovered/Resolved]
  - Urticaria [Recovering/Resolving]
  - Psoriasis [Recovered/Resolved]
  - Pruritus [Recovered/Resolved]
  - Malaise [Recovered/Resolved with Sequelae]
  - Swelling face [Recovered/Resolved]
  - Rash macular [Recovered/Resolved]
  - Urinary tract infection [Recovering/Resolving]
  - Calculus bladder [Not Recovered/Not Resolved]
  - Central obesity [Recovered/Resolved]
  - Burning sensation [Recovered/Resolved]
  - Gastrointestinal disorder [Unknown]
  - Gastrointestinal tract irritation [Unknown]
  - Feeling abnormal [Recovered/Resolved]
  - Skin reaction [Recovered/Resolved]
  - Performance enhancing product use [Unknown]
  - Breath odour [Recovered/Resolved]
  - Dysuria [Recovered/Resolved with Sequelae]
  - Anxiety [Unknown]
  - Oedema [Recovered/Resolved]

NARRATIVE: CASE EVENT DATE: 20200128
